FAERS Safety Report 8634463 (Version 4)
Quarter: 2013Q1

REPORT INFORMATION
  Report Type: Spontaneous
  Country: US (occurrence: None)
  Receive Date: 20120608
  Receipt Date: 20121231
  Transmission Date: 20140127
  Serious: Yes (Other)
  Sender: FDA-Public Use
  Company Number: DSA_57606_2012

PATIENT
  Age: 60 Year
  Sex: Male

DRUGS (1)
  1. XENAZINE [Suspect]
     Indication: MUSCLE SPASMS
     Dosage: (12.5 MG QD ORAL), (DF)
     Route: 048
     Dates: end: 20120529

REACTIONS (5)
  - Fatigue [None]
  - Insomnia [None]
  - Depression [None]
  - Anxiety [None]
  - Lethargy [None]
